FAERS Safety Report 8516157-7 (Version None)
Quarter: 2012Q3

REPORT INFORMATION
  Report Type: 
  Country: None (occurrence: None)
  Receive Date: 20120717
  Receipt Date: 20120711
  Transmission Date: 20120928
  Serious: Yes (Hospitalization)
  Sender: FDA-Public Use
  Company Number: CA-B.I. PHARMACEUTICALS,INC./RIDGEFIELD-2012-CN-01457CN

PATIENT
  Sex: Male

DRUGS (4)
  1. NORVASC [Concomitant]
     Indication: HYPERTENSION
  2. FLOMAX [Suspect]
     Indication: BENIGN PROSTATIC HYPERPLASIA
     Dates: start: 20120601, end: 20120629
  3. ATACAND [Concomitant]
     Indication: HYPERTENSION
  4. LIPITOR [Concomitant]
     Indication: HYPERLIPIDAEMIA

REACTIONS (1)
  - URINARY RETENTION [None]
